FAERS Safety Report 7183723-3 (Version None)
Quarter: 2010Q4

REPORT INFORMATION
  Report Type: 
  Country: None (occurrence: None)
  Receive Date: 20101220
  Receipt Date: 20101220
  Transmission Date: 20110411
  Serious: Yes (Hospitalization)
  Sender: FDA-Public Use
  Company Number: None

PATIENT
  Age: 33 Year
  Sex: Male
  Weight: 78.5 kg

DRUGS (4)
  1. BACTRIM DS [Suspect]
     Indication: HIV INFECTION
     Dosage: 1 BID PO RECENT
     Route: 048
  2. BACTRIM DS [Suspect]
     Indication: PROPHYLAXIS
     Dosage: 1 BID PO RECENT
     Route: 048
  3. NORCO [Concomitant]
  4. MAGIC MOUTHWASH [Concomitant]

REACTIONS (4)
  - BLOOD POTASSIUM DECREASED [None]
  - HAEMOPTYSIS [None]
  - PNEUMONIA [None]
  - SEPSIS [None]
